FAERS Safety Report 4973012-7 (Version None)
Quarter: 2006Q2

REPORT INFORMATION
  Report Type: 
  Country: None (occurrence: None)
  Receive Date: 20060414
  Receipt Date: 20060407
  Transmission Date: 20061013
  Serious: Yes (Hospitalization)
  Sender: FDA-Public Use
  Company Number: FR-GLAXOSMITHKLINE-B0420140A

PATIENT
  Age: 60 Year
  Sex: Male

DRUGS (7)
  1. ZELITREX [Suspect]
     Indication: HERPES VIRUS INFECTION
     Dosage: 500MG PER DAY
     Route: 048
     Dates: start: 20060129, end: 20060131
  2. FLECAINIDE ACETATE [Concomitant]
  3. LEVOTHYROX [Concomitant]
  4. ZESTRIL [Concomitant]
  5. FLODIL [Concomitant]
  6. LODALES [Concomitant]
  7. GINKOR [Concomitant]

REACTIONS (8)
  - ABDOMINAL PAIN UPPER [None]
  - ALANINE AMINOTRANSFERASE INCREASED [None]
  - ASPARTATE AMINOTRANSFERASE INCREASED [None]
  - BLOOD BILIRUBIN INCREASED [None]
  - DIARRHOEA [None]
  - GAMMA-GLUTAMYLTRANSFERASE INCREASED [None]
  - HEPATIC ENZYME INCREASED [None]
  - VOMITING [None]
